FAERS Safety Report 8616742-8 (Version None)
Quarter: 2012Q3

REPORT INFORMATION
  Report Type: 
  Country: None (occurrence: None)
  Receive Date: 20120823
  Receipt Date: 20120820
  Transmission Date: 20120928
  Serious: Yes (Disabling)
  Sender: FDA-Public Use
  Company Number: FR-009507513-1208FRA008329

PATIENT

DRUGS (11)
  1. ACETAMINOPHEN [Concomitant]
     Route: 048
  2. LORAZEPAM [Concomitant]
     Route: 048
  3. ACUPAN [Concomitant]
     Route: 048
  4. AMIKACIN [Suspect]
     Dosage: 2 G, QD
     Route: 042
     Dates: start: 20111117, end: 20111120
  5. POLYETHYLENE GLYCOL [Concomitant]
     Route: 048
  6. AMIKACIN [Suspect]
     Indication: PSEUDOMONAS INFECTION
     Dosage: 1.2 G, QD
     Route: 042
     Dates: start: 20111116, end: 20111116
  7. AMIKACIN [Suspect]
     Dosage: 2.5 G, QD
     Route: 042
     Dates: start: 20111121, end: 20111127
  8. TIENAM 500MG/500MG, POUDRE POUR PERFUSION [Suspect]
     Indication: PSEUDOMONAS INFECTION
     Dosage: 1 G, TID
     Route: 042
     Dates: start: 20111116, end: 20111129
  9. AMIKACIN [Suspect]
     Dosage: 2.5 G, QD
     Route: 042
     Dates: start: 20111201, end: 20111229
  10. RABEPRAZOLE SODIUM [Concomitant]
     Route: 048
  11. AMIKACIN [Suspect]
     Dosage: 2 G, QD
     Route: 042
     Dates: start: 20111128, end: 20111201

REACTIONS (1)
  - HYPOACUSIS [None]
